FAERS Safety Report 10455435 (Version 1)
Quarter: 2014Q3

REPORT INFORMATION
  Report Type: Spontaneous
  Country: US (occurrence: None)
  Receive Date: 20140815
  Receipt Date: 20140815
  Transmission Date: 20150326
  Serious: Yes (Other)
  Sender: FDA-Public Use
  Company Number: FK201400594

PATIENT
  Age: 56 Year
  Sex: Female
  Weight: 79.38 kg

DRUGS (7)
  1. LIDOCAINE AND EPINEPHRINE (LIDOCAINE, EPINEPHRINE) (LIDOCAINE, EPINEPHRINE) [Concomitant]
  2. PROPOFOL (PROPOFOL) (PROPOFOL) [Concomitant]
  3. MIDAZOLAM HCL [Suspect]
     Active Substance: MIDAZOLAM HYDROCHLORIDE
     Indication: DENTAL IMPLANTATION
     Route: 042
  4. FENTANYL (FENTANYL) (FENTANYL) [Suspect]
     Active Substance: FENTANYL
     Indication: DENTAL IMPLANTATION
  5. DECADRON (DEXAMETHASONE) (DEXAMETHASONE) [Concomitant]
  6. KETAMINE (KETAMINE) (KETAMINE) [Suspect]
     Active Substance: KETAMINE
     Indication: DENTAL IMPLANTATION
  7. PENICILLINE (BENZYLPENICILLIN) (BENZYLPENICILLIN) [Concomitant]

REACTIONS (2)
  - Sudden onset of sleep [None]
  - Respiratory arrest [None]

NARRATIVE: CASE EVENT DATE: 20140131
